FAERS Safety Report 22257931 (Version 2)
Quarter: 2023Q2

REPORT INFORMATION
  Report Type: Report from Study
  Country: KR (occurrence: KR)
  Receive Date: 20230427
  Receipt Date: 20230510
  Transmission Date: 20230721
  Serious: Yes (Hospitalization)
  Sender: FDA-Public Use
  Company Number: KR-002147023-NVSC2023KR094496

PATIENT
  Age: 60 Year
  Sex: Female
  Weight: 59.8 kg

DRUGS (13)
  1. SCEMBLIX [Suspect]
     Active Substance: ASCIMINIB HYDROCHLORIDE
     Indication: Chronic myeloid leukaemia
     Dosage: 40 MG, BID
     Route: 048
     Dates: start: 20221014, end: 20230425
  2. URSODIOL [Concomitant]
     Active Substance: URSODIOL
     Indication: Alanine aminotransferase increased
     Dosage: UNK
     Route: 065
     Dates: start: 20230103, end: 20230425
  3. URSODIOL [Concomitant]
     Active Substance: URSODIOL
     Indication: Aspartate aminotransferase increased
  4. ASPIRIN [Concomitant]
     Active Substance: ASPIRIN
     Indication: Peripheral arterial occlusive disease
     Dosage: UNK
     Route: 065
     Dates: start: 20230418, end: 20230426
  5. ASPIRIN [Concomitant]
     Active Substance: ASPIRIN
     Indication: Intermittent claudication
  6. BERAPROST [Concomitant]
     Active Substance: BERAPROST
     Indication: Peripheral arterial occlusive disease
     Dosage: UNK
     Route: 065
     Dates: start: 20230418, end: 20230425
  7. BERAPROST [Concomitant]
     Active Substance: BERAPROST
     Indication: Intermittent claudication
  8. PENIRAMIN [Concomitant]
     Indication: Premedication
     Dosage: UNK
     Route: 065
     Dates: start: 20230418, end: 20230418
  9. GASTER [Concomitant]
     Active Substance: FAMOTIDINE
     Indication: Prophylaxis against gastrointestinal ulcer
     Dosage: UNK
     Route: 065
     Dates: start: 20230425, end: 20230425
  10. LIPITOR [Concomitant]
     Active Substance: ATORVASTATIN CALCIUM
     Indication: Hyperlipidaemia
     Dosage: UNK
     Route: 065
     Dates: start: 20230425, end: 20230426
  11. NOLTEC [Concomitant]
     Indication: Prophylaxis against gastrointestinal ulcer
     Dosage: UNK
     Route: 065
     Dates: start: 20230425, end: 20230425
  12. PIDOGUL [Concomitant]
     Indication: Peripheral arterial occlusive disease
     Dosage: UNK
     Route: 065
     Dates: start: 20230425, end: 20230426
  13. PIDOGUL [Concomitant]
     Indication: Intermittent claudication

REACTIONS (1)
  - Peripheral artery occlusion [Recovered/Resolved]

NARRATIVE: CASE EVENT DATE: 20230425
